FAERS Safety Report 15405972 (Version 2)
Quarter: 2018Q3

REPORT INFORMATION
  Report Type: Spontaneous
  Country: US (occurrence: US)
  Receive Date: 20180920
  Receipt Date: 20180927
  Transmission Date: 20181010
  Serious: No
  Sender: FDA-Public Use
  Company Number: US-PFIZER INC-2018375254

PATIENT
  Age: 60 Year
  Sex: Female
  Weight: 66.67 kg

DRUGS (2)
  1. XELJANZ XR [Suspect]
     Active Substance: TOFACITINIB CITRATE
     Indication: RHEUMATOID ARTHRITIS
     Dosage: 11 MG, DAILY
     Route: 048
     Dates: start: 20180821
  2. PREDNISONE. [Concomitant]
     Active Substance: PREDNISONE
     Dosage: 5 MG, UNK

REACTIONS (7)
  - Erythema [Unknown]
  - Contusion [Unknown]
  - Throat irritation [Not Recovered/Not Resolved]
  - Back pain [Unknown]
  - Muscular weakness [Unknown]
  - Joint swelling [Unknown]
  - Headache [Unknown]

NARRATIVE: CASE EVENT DATE: 201808
